FAERS Safety Report 8309222-0 (Version None)
Quarter: 2012Q2

REPORT INFORMATION
  Report Type: 
  Country: None (occurrence: None)
  Receive Date: 20120424
  Receipt Date: 20120414
  Transmission Date: 20120825
  Serious: Yes (Hospitalization, Other)
  Sender: FDA-Public Use
  Company Number: US-ELI_LILLY_AND_COMPANY-US201204005066

PATIENT
  Sex: Male
  Weight: 104.76 kg

DRUGS (9)
  1. BYETTA [Suspect]
     Indication: TYPE 2 DIABETES MELLITUS
     Dosage: 10 UG, BID
     Route: 058
     Dates: start: 20050101, end: 20120330
  2. ASPIRIN                                 /USA/ [Concomitant]
     Indication: CARDIAC DISORDER
     Dosage: UNK
     Route: 048
  3. LIPITOR [Concomitant]
     Indication: BLOOD CHOLESTEROL INCREASED
     Dosage: UNK
     Route: 048
  4. PRANDIN                                 /USA/ [Concomitant]
     Indication: TYPE 2 DIABETES MELLITUS
     Dosage: UNK
     Route: 048
     Dates: end: 20110101
  5. CARVEDILOL [Concomitant]
     Indication: CARDIAC DISORDER
     Dosage: UNK
     Route: 048
  6. ZETIA [Concomitant]
     Indication: BLOOD CHOLESTEROL INCREASED
     Dosage: UNK
     Route: 048
  7. METFORMIN HCL [Concomitant]
     Indication: TYPE 2 DIABETES MELLITUS
     Dosage: UNK
     Route: 048
  8. DIOVAN [Concomitant]
     Indication: CARDIAC DISORDER
     Dosage: UNK
     Route: 048
  9. OXYBUTYNIN [Concomitant]
     Indication: PROSTATIC DISORDER
     Dosage: UNK
     Route: 048

REACTIONS (5)
  - PROSTATIC DISORDER [None]
  - RENAL CANCER [None]
  - BLOOD GLUCOSE DECREASED [None]
  - IMPLANTABLE DEFIBRILLATOR INSERTION [None]
  - GLYCOSYLATED HAEMOGLOBIN DECREASED [None]
